FAERS Safety Report 13393214 (Version 1)
Quarter: 2017Q1

REPORT INFORMATION
  Report Type: Spontaneous
  Country: PT (occurrence: PT)
  Receive Date: 20170331
  Receipt Date: 20170331
  Transmission Date: 20170429
  Serious: Yes (Hospitalization, Disabling)
  Sender: FDA-Public Use
  Company Number: PT-AMGEN-PRTSP2017047203

PATIENT
  Age: 71 Year
  Sex: Male
  Weight: 65 kg

DRUGS (6)
  1. GOSERRELINA [Concomitant]
     Indication: PROSTATE CANCER
     Route: 058
  2. METFORMIN [Concomitant]
     Active Substance: METFORMIN HYDROCHLORIDE
  3. ZYTIGA [Concomitant]
     Active Substance: ABIRATERONE ACETATE
     Indication: PROSTATE CANCER
     Route: 048
  4. XGEVA [Suspect]
     Active Substance: DENOSUMAB
     Indication: PROPHYLAXIS
     Dosage: 120 MG, Q4WK
     Route: 058
     Dates: start: 201608, end: 20170208
  5. OMEPRAZOL [Concomitant]
     Active Substance: OMEPRAZOLE
  6. OLSAR PLUS [Concomitant]
     Active Substance: HYDROCHLOROTHIAZIDE\OLMESARTAN MEDOXOMIL
     Route: 048

REACTIONS (9)
  - Aggression [Recovering/Resolving]
  - Hypocalcaemia [Recovering/Resolving]
  - Asthenia [Recovering/Resolving]
  - Insomnia [Recovering/Resolving]
  - Malaise [Recovering/Resolving]
  - Dysphagia [Recovering/Resolving]
  - Fatigue [Recovering/Resolving]
  - Constipation [Recovering/Resolving]
  - Decreased appetite [Recovering/Resolving]

NARRATIVE: CASE EVENT DATE: 20170208
